FAERS Safety Report 23431231 (Version 1)
Quarter: 2024Q1

REPORT INFORMATION
  Report Type: Spontaneous
  Country: US (occurrence: US)
  Receive Date: 20240123
  Receipt Date: 20240123
  Transmission Date: 20240409
  Serious: No
  Sender: FDA-Public Use
  Company Number: US-ALCON LABORATORIES-ALC2023US000499

PATIENT
  Sex: Female

DRUGS (3)
  1. ISOPTO ATROPINE [Suspect]
     Active Substance: ATROPINE SULFATE
     Indication: Postoperative care
     Dosage: USED IT ONCE ON RIGHT EYE
     Route: 047
     Dates: start: 20221228
  2. ISOPTO ATROPINE [Suspect]
     Active Substance: ATROPINE SULFATE
     Indication: Eye pain
  3. ISOPTO ATROPINE [Suspect]
     Active Substance: ATROPINE SULFATE
     Indication: Ocular hyperaemia

REACTIONS (2)
  - Intentional product misuse [Unknown]
  - Mydriasis [Recovering/Resolving]
